FAERS Safety Report 23758544 (Version 3)
Quarter: 2025Q1

REPORT INFORMATION
  Report Type: Spontaneous
  Country: US (occurrence: US)
  Receive Date: 20240418
  Receipt Date: 20250131
  Transmission Date: 20250408
  Serious: No
  Sender: BLUEPRINT MEDICINES
  Company Number: US-Blueprint Medicines Corporation-3170

PATIENT
  Age: 45 Year
  Sex: Female

DRUGS (2)
  1. AYVAKIT [Suspect]
     Active Substance: AVAPRITINIB
     Indication: Advanced systemic mastocytosis
     Route: 065
     Dates: start: 20210805
  2. AYVAKIT [Suspect]
     Active Substance: AVAPRITINIB
     Indication: Malignant mast cell neoplasm
     Route: 048
     Dates: start: 20210805

REACTIONS (20)
  - Pain in extremity [Not Recovered/Not Resolved]
  - Limb discomfort [Not Recovered/Not Resolved]
  - Arthralgia [Not Recovered/Not Resolved]
  - Iron deficiency [Unknown]
  - Vitamin B12 decreased [Unknown]
  - Brain fog [Not Recovered/Not Resolved]
  - Aphasia [Unknown]
  - Vision blurred [Unknown]
  - Lacrimation increased [Unknown]
  - Contusion [Unknown]
  - Peripheral swelling [Not Recovered/Not Resolved]
  - Gait disturbance [Not Recovered/Not Resolved]
  - Fatigue [Unknown]
  - Inflammation [Not Recovered/Not Resolved]
  - Weight increased [Unknown]
  - Hypotension [Unknown]
  - Unevaluable event [Not Recovered/Not Resolved]
  - Headache [Not Recovered/Not Resolved]
  - Memory impairment [Not Recovered/Not Resolved]
  - Tooth disorder [Unknown]
